FAERS Safety Report 5136075-4 (Version None)
Quarter: 2006Q4

REPORT INFORMATION
  Report Type: 
  Country: None (occurrence: None)
  Receive Date: 20061027
  Receipt Date: 20061013
  Transmission Date: 20070319
  Serious: Yes (Other)
  Sender: FDA-Public Use
  Company Number: FR-KINGPHARMUSA00001-K200601304

PATIENT
  Age: 58 Year
  Sex: Female

DRUGS (7)
  1. LEVOXYL [Suspect]
     Indication: POST PROCEDURAL HYPOTHYROIDISM
     Dosage: UNK, UNK
  2. LEVOXYL [Suspect]
     Dosage: 225 UG, QD
  3. LIOTHYRONINE [Concomitant]
     Indication: POST PROCEDURAL HYPOTHYROIDISM
  4. LOPINAVIR W/RITONAVIR [Suspect]
     Indication: HIV INFECTION
  5. NELFINAVIR [Suspect]
  6. ZIDOVUDINE [Concomitant]
  7. LAMIVUDINE [Concomitant]

REACTIONS (7)
  - BLOOD THYROID STIMULATING HORMONE DECREASED [None]
  - BLOOD THYROID STIMULATING HORMONE INCREASED [None]
  - DRUG INTERACTION [None]
  - HYPOTHYROIDISM [None]
  - THYROXINE FREE DECREASED [None]
  - TRI-IODOTHYRONINE DECREASED [None]
  - TRI-IODOTHYRONINE INCREASED [None]
